FAERS Safety Report 4673755-9 (Version None)
Quarter: 2005Q2

REPORT INFORMATION
  Report Type: 
  Country: None (occurrence: None)
  Receive Date: 20050524
  Receipt Date: 20050325
  Transmission Date: 20051028
  Serious: Yes (Death)
  Sender: FDA-Public Use
  Company Number: B01200500675

PATIENT
  Age: 62 Year
  Sex: Male

DRUGS (5)
  1. OXALIPLATIN - SOLUTION - 156 MG [Suspect]
     Indication: COLORECTAL CANCER
     Dosage: 156 MG Q2W (CUMULATIVE DOSE: 1139 MG), INTRAVENOUS NOS
     Route: 042
     Dates: start: 20040908, end: 20040908
  2. OXALIPLATIN - SOLUTION - 156 MG [Suspect]
     Indication: METASTASES TO LIVER
     Dosage: 156 MG Q2W (CUMULATIVE DOSE: 1139 MG), INTRAVENOUS NOS
     Route: 042
     Dates: start: 20040908, end: 20040908
  3. FLUOROURACIL [Suspect]
     Dosage: 1840 MG (400 MG/M2 BOLUS THEN 600 MG/M2 22 HOUR CONTINUOUS INFUSION ON D1 AND D2 Q2W): (CUMULATIVE D
     Route: 042
     Dates: start: 20040908, end: 20040908
  4. ASPIRIN [Concomitant]
  5. GABAPENTIN [Concomitant]

REACTIONS (6)
  - ACUTE CORONARY SYNDROME [None]
  - CONDITION AGGRAVATED [None]
  - CORONARY ARTERY DISEASE [None]
  - DRUG TOXICITY [None]
  - LEG AMPUTATION [None]
  - PERIPHERAL OCCLUSIVE DISEASE [None]
